FAERS Safety Report 16751469 (Version 1)
Quarter: 2019Q3

REPORT INFORMATION
  Report Type: Spontaneous
  Country: US (occurrence: US)
  Receive Date: 20190828
  Receipt Date: 20190828
  Transmission Date: 20191005
  Serious: Yes (Hospitalization, Other)
  Sender: FDA-Public Use
  Company Number: US-TEVA-2019-US-1098362

PATIENT
  Sex: Female

DRUGS (21)
  1. ORAL BACLOFEN [Suspect]
     Active Substance: BACLOFEN
     Dosage: 30 MILLIGRAM DAILY;
     Route: 048
  2. DULCOLAX NOS [Concomitant]
     Active Substance: BISACODYL OR DOCUSATE SODIUM
  3. STOOL SOFTENER (DOCUSATE) [Concomitant]
     Active Substance: DOCUSATE
  4. METHADONE [Concomitant]
     Active Substance: METHADONE HYDROCHLORIDE
  5. LISINOPRIL. [Concomitant]
     Active Substance: LISINOPRIL
  6. CYMBALTA [Concomitant]
     Active Substance: DULOXETINE HYDROCHLORIDE
  7. SEROQUEL [Concomitant]
     Active Substance: QUETIAPINE FUMARATE
  8. LIORESAL [Suspect]
     Active Substance: BACLOFEN
     Indication: MUSCLE SPASTICITY
     Route: 037
  9. LIORESAL [Suspect]
     Active Substance: BACLOFEN
     Dosage: CURRENT DOSE AS OF
     Route: 037
     Dates: end: 20190513
  10. LIORESAL [Suspect]
     Active Substance: BACLOFEN
     Indication: CEREBROVASCULAR ACCIDENT
     Dosage: PER DAY-FLEX
     Route: 037
     Dates: end: 20170615
  11. LIORESAL [Suspect]
     Active Substance: BACLOFEN
     Dosage: PER DAY
     Route: 037
  12. DANTRIUM [Concomitant]
     Active Substance: DANTROLENE SODIUM
  13. ORAL BACLOFEN [Suspect]
     Active Substance: BACLOFEN
     Dosage: 2 TO 3 TIMES DAILY, AS NEEDED
     Route: 048
  14. LIORESAL [Suspect]
     Active Substance: BACLOFEN
     Indication: CENTRAL PAIN SYNDROME
     Dosage: PER DAY
     Route: 037
     Dates: start: 20170615
  15. PRILOSEC [Concomitant]
     Active Substance: OMEPRAZOLE MAGNESIUM
  16. LIORESAL [Suspect]
     Active Substance: BACLOFEN
     Indication: MUSCLE SPASMS
     Dosage: UNKNOWN DOSE DECREASED D/T OVERDOSE, THEN INCREASED AGAIN
     Route: 065
  17. LIORESAL [Suspect]
     Active Substance: BACLOFEN
     Dosage: PER DAY
     Route: 037
  18. LIORESAL [Suspect]
     Active Substance: BACLOFEN
     Dosage: PER DAY
  19. HYDROMORPHONE [Suspect]
     Active Substance: HYDROMORPHONE
     Route: 037
  20. AMLODIPINE [Concomitant]
     Active Substance: AMLODIPINE BESYLATE
  21. FLEXERIL [Concomitant]
     Active Substance: CYCLOBENZAPRINE HYDROCHLORIDE

REACTIONS (10)
  - Fracture [Unknown]
  - Pain [Not Recovered/Not Resolved]
  - Fall [Unknown]
  - Overdose [Unknown]
  - Muscle spasms [Not Recovered/Not Resolved]
  - Knee operation [Unknown]
  - Depressed level of consciousness [Unknown]
  - Hypertension [Unknown]
  - Therapy non-responder [Unknown]
  - Muscle spasticity [Unknown]
